FAERS Safety Report 6496768-3 (Version None)
Quarter: 2009Q4

REPORT INFORMATION
  Report Type: 
  Country: None (occurrence: None)
  Receive Date: 20091125
  Receipt Date: 20090405
  Transmission Date: 20100525
  Serious: Yes (Hospitalization)
  Sender: FDA-Public Use
  Company Number: 2009BH005820

PATIENT
  Age: 57 Year
  Sex: Female

DRUGS (10)
  1. DIANEAL [Suspect]
     Indication: PERITONEAL DIALYSIS
     Dosage: 8 L; EVERY DAY; IP
     Route: 033
     Dates: start: 20081020
  2. DIANEAL [Suspect]
     Indication: PERITONEAL DIALYSIS
     Dosage: 2 L; EVERY DAY; IP
     Route: 033
     Dates: start: 20081020
  3. VITAMIN TAB [Concomitant]
  4. CALCIUM [Concomitant]
  5. CALCITRIOL [Concomitant]
  6. MIACALCIN [Concomitant]
  7. SIROLIMUS [Concomitant]
  8. POTASSIUM CHLORIDE [Concomitant]
  9. PRILOSEC [Concomitant]
  10. LEVOTHYROXINE SODIUM [Concomitant]

REACTIONS (1)
  - PERITONITIS BACTERIAL [None]
